FAERS Safety Report 7075443-0 (Version None)
Quarter: 2010Q4

REPORT INFORMATION
  Report Type: 
  Country: None (occurrence: None)
  Receive Date: 20101030
  Receipt Date: 20100914
  Transmission Date: 20110411
  Serious: No
  Sender: FDA-Public Use
  Company Number: US-WYE-H17570010

PATIENT
  Sex: Female
  Weight: 68.1 kg

DRUGS (5)
  1. PRISTIQ [Suspect]
     Indication: MENOPAUSAL SYMPTOMS
     Dates: start: 20100801
  2. PRISTIQ [Suspect]
     Indication: DEPRESSED MOOD
  3. FEXOFENADINE HCL [Concomitant]
  4. ZOLOFT [Suspect]
     Indication: INSOMNIA
     Dates: end: 20100801
  5. ZOLOFT [Suspect]
     Indication: IRRITABILITY

REACTIONS (5)
  - DIZZINESS [None]
  - DRUG DOSE OMISSION [None]
  - MALAISE [None]
  - POOR QUALITY SLEEP [None]
  - PYREXIA [None]
